FAERS Safety Report 14872933 (Version 2)
Quarter: 2018Q2

REPORT INFORMATION
  Report Type: Report from Study
  Country: CA (occurrence: CA)
  Receive Date: 20180510
  Receipt Date: 20180514
  Transmission Date: 20180711
  Serious: Yes (Hospitalization)
  Sender: FDA-Public Use
  Company Number: CA-ROCHE-2106273

PATIENT
  Sex: Female

DRUGS (6)
  1. PANTOPRAZOL [Concomitant]
     Active Substance: PANTOPRAZOLE SODIUM
  2. ASPIRIN. [Concomitant]
     Active Substance: ASPIRIN
  3. ALECENSARO [Suspect]
     Active Substance: ALECTINIB
     Route: 048
     Dates: start: 20180323
  4. AZAPHEN [Concomitant]
  5. ALECENSARO [Suspect]
     Active Substance: ALECTINIB
     Indication: NON-SMALL CELL LUNG CANCER
     Dosage: ON HOLD
     Route: 048
     Dates: start: 2018
  6. ALECENSARO [Suspect]
     Active Substance: ALECTINIB
     Route: 048
     Dates: start: 201804

REACTIONS (7)
  - Pleural effusion [Unknown]
  - Dyspnoea [Unknown]
  - Peripheral swelling [Unknown]
  - Oxygen saturation decreased [Unknown]
  - Pneumonia [Unknown]
  - Cardiac failure [Unknown]
  - Confusional state [Unknown]

NARRATIVE: CASE EVENT DATE: 2018
